FAERS Safety Report 7867964-5 (Version None)
Quarter: 2011Q4

REPORT INFORMATION
  Report Type: 
  Country: None (occurrence: None)
  Receive Date: 20111028
  Receipt Date: 20111019
  Transmission Date: 20120403
  Serious: Yes (Other)
  Sender: FDA-Public Use
  Company Number: GB-ASTRAZENECA-2011SE62944

PATIENT
  Age: 63 Year
  Sex: Male

DRUGS (1)
  1. BICALUTAMIDE [Suspect]
     Indication: PROSTATE CANCER
     Route: 048
     Dates: start: 20110111, end: 20110701

REACTIONS (3)
  - SCOTOMA [None]
  - VISUAL IMPAIRMENT [None]
  - VISION BLURRED [None]
